FAERS Safety Report 4869629-0 (Version None)
Quarter: 2005Q4

REPORT INFORMATION
  Report Type: 
  Country: None (occurrence: None)
  Receive Date: 20051227
  Receipt Date: 20051223
  Transmission Date: 20060501
  Serious: Yes (Hospitalization)
  Sender: FDA-Public Use
  Company Number: HQWYE150323DEC05

PATIENT

DRUGS (1)
  1. EFFEXOR XR [Suspect]
     Route: 048

REACTIONS (2)
  - AUTOIMMUNE DISORDER [None]
  - JAUNDICE [None]
